FAERS Safety Report 21059209 (Version 1)
Quarter: 2022Q3

REPORT INFORMATION
  Report Type: Report from Study
  Country: BR (occurrence: BR)
  Receive Date: 20220708
  Receipt Date: 20220708
  Transmission Date: 20221027
  Serious: Yes (Death)
  Sender: FDA-Public Use
  Company Number: BR-NOVARTISPH-NVSC2022BR066681

PATIENT
  Sex: Female

DRUGS (2)
  1. COSENTYX [Suspect]
     Active Substance: SECUKINUMAB
     Indication: Psoriasis
     Dosage: 300 MG (NOT STARTED)
     Route: 065
  2. COSENTYX [Suspect]
     Active Substance: SECUKINUMAB
     Dosage: 1 DOSAGE FORM, QMO (2 PENS PER MONTH, 0, 1, 2, 3, AND 4)
     Route: 058

REACTIONS (2)
  - Cardio-respiratory arrest [Fatal]
  - Product prescribing error [Unknown]

NARRATIVE: CASE EVENT DATE: 20220607
